FAERS Safety Report 9082008 (Version 1)
Quarter: 2013Q1

REPORT INFORMATION
  Report Type: Spontaneous
  Country: US (occurrence: US)
  Receive Date: 20130218
  Receipt Date: 20130218
  Transmission Date: 20140127
  Serious: No
  Sender: FDA-Public Use
  Company Number: US-PFIZER INC-2013059929

PATIENT
  Age: 49 Year
  Sex: Male

DRUGS (3)
  1. GABAPENTIN [Suspect]
     Indication: FIBROMYALGIA
     Dosage: 40 MG, 2X/DAY
     Dates: start: 2007, end: 200703
  2. MISOPROSTOL [Concomitant]
     Dosage: UNK
  3. CELEXA [Concomitant]
     Indication: DEPRESSION
     Dosage: UNK
     Dates: start: 1993

REACTIONS (1)
  - Oedema peripheral [Recovered/Resolved]
